FAERS Safety Report 9074359 (Version 1)
Quarter: 2013Q1

REPORT INFORMATION
  Report Type: Spontaneous
  Country: US (occurrence: US)
  Receive Date: 20130128
  Receipt Date: 20130128
  Transmission Date: 20140127
  Serious: Yes (Other)
  Sender: FDA-Public Use
  Company Number: US-RB-048874-13

PATIENT
  Age: 0 None
  Sex: Male

DRUGS (4)
  1. SUBOXONE TABLET [Suspect]
     Route: 064
     Dates: start: 201012, end: 2011
  2. SUBOXONE TABLET [Suspect]
     Indication: DRUG DEPENDENCE
     Dosage: TAPERED DOWN TO 2 MG DAILY AND STOPPED
     Route: 064
     Dates: start: 2011, end: 201108
  3. SUBOXONE TABLET [Suspect]
     Route: 064
     Dates: start: 201108, end: 20110909
  4. MULTIVITAMINS WITH MINERALS [Suspect]
     Indication: PREGNANCY
     Dosage: DOSING DETAILS UNKNOWN
     Route: 064
     Dates: start: 2011, end: 20110909

REACTIONS (5)
  - Foetal exposure during pregnancy [Recovered/Resolved]
  - Infantile colic [Recovered/Resolved]
  - Jaundice neonatal [Recovered/Resolved]
  - Caesarean section [None]
  - Maternal drugs affecting foetus [None]
